FAERS Safety Report 8547449 (Version 4)
Quarter: 2014Q2

REPORT INFORMATION
  Report Type: Other
  Country: ES (occurrence: ES)
  Receive Date: 20120504
  Receipt Date: 20140529
  Transmission Date: 20141212
  Serious: Yes (Hospitalization)
  Sender: FDA-Public Use
  Company Number: ES-BRISTOL-MYERS SQUIBB COMPANY-15858848

PATIENT
  Age: 56 Year
  Sex: Male

DRUGS (1)
  1. SPRYCEL [Suspect]
     Indication: CHRONIC MYELOID LEUKAEMIA
     Dosage: DRUG INTERRUPTED 23JUN2011
     Dates: start: 200706, end: 201106

REACTIONS (7)
  - Pulmonary arterial hypertension [Recovered/Resolved]
  - Pleural effusion [Recovered/Resolved]
  - Oedema peripheral [Unknown]
  - Weight increased [Unknown]
  - Abdominal pain [Unknown]
  - Fatigue [Unknown]
  - Sleep apnoea syndrome [Unknown]
